FAERS Safety Report 17277028 (Version 1)
Quarter: 2020Q1

REPORT INFORMATION
  Report Type: Spontaneous
  Country: US (occurrence: US)
  Receive Date: 20191226
  Receipt Date: 20191226
  Transmission Date: 20200409
  Serious: Yes (Other)
  Sender: FDA-Public Use
  Company Number: None

PATIENT
  Age: 66 Year
  Sex: Male

DRUGS (1)
  1. SILDENAFIL (SILDENAFIL CITRATE 100MG TAB) [Suspect]
     Active Substance: SILDENAFIL
     Indication: ERECTILE DYSFUNCTION
     Route: 048
     Dates: start: 20190818, end: 20191012

REACTIONS (3)
  - Transient ischaemic attack [None]
  - Delirium [None]
  - Amnesia [None]

NARRATIVE: CASE EVENT DATE: 20191019
